FAERS Safety Report 13207258 (Version 1)
Quarter: 2017Q1

REPORT INFORMATION
  Report Type: Spontaneous
  Country: US (occurrence: US)
  Receive Date: 20170209
  Receipt Date: 20170209
  Transmission Date: 20170428
  Serious: Yes (Other)
  Sender: FDA-Public Use
  Company Number: None

PATIENT
  Age: 92 Year
  Sex: Female
  Weight: 55.8 kg

DRUGS (14)
  1. LEVOTHYROXINE. [Concomitant]
     Active Substance: LEVOTHYROXINE
  2. SENNA [Concomitant]
     Active Substance: SENNA LEAF\SENNOSIDES\SENNOSIDES A AND B
  3. CENTRUM SILVER [Concomitant]
     Active Substance: MINERALS\VITAMINS
  4. ARTIFICIAL TEARS [Concomitant]
     Active Substance: GLYCERIN\HYPROMELLOSES\POLYETHYLENE GLYCOL 400
  5. SIMITHACOME [Concomitant]
  6. TRAMADOL. [Suspect]
     Active Substance: TRAMADOL
     Indication: PROCEDURAL PAIN
     Route: 048
     Dates: start: 20161118, end: 20161121
  7. TRAMADOL. [Suspect]
     Active Substance: TRAMADOL
     Indication: POST PROCEDURAL INFLAMMATION
     Route: 048
     Dates: start: 20161118, end: 20161121
  8. SCOPOLAMINE PATCH 1.5MG/7HR NOVARTIS [Suspect]
     Active Substance: SCOPOLAMINE
     Indication: SALIVARY HYPERSECRETION
     Dosage: OTHER FREQUENCY:1 PATCH EVERY 72 H;?
     Route: 062
     Dates: start: 20160715, end: 20160718
  9. CALCIUM [Concomitant]
     Active Substance: CALCIUM
  10. VITAMIN D3 [Concomitant]
     Active Substance: CHOLECALCIFEROL
  11. CARBIDOPA/LOBIDOPA [Concomitant]
  12. ACETAMINOPHEN. [Concomitant]
     Active Substance: ACETAMINOPHEN
  13. LACTULOSE. [Concomitant]
     Active Substance: LACTULOSE
  14. FAMOTIDINE. [Concomitant]
     Active Substance: FAMOTIDINE

REACTIONS (3)
  - Hallucination [None]
  - Hallucination, visual [None]
  - Hallucination, auditory [None]

NARRATIVE: CASE EVENT DATE: 20161118
